FAERS Safety Report 7316087-2 (Version None)
Quarter: 2011Q1

REPORT INFORMATION
  Report Type: 
  Country: None (occurrence: None)
  Receive Date: 20110225
  Receipt Date: 20110216
  Transmission Date: 20110831
  Serious: Yes (Other)
  Sender: FDA-Public Use
  Company Number: US-ELI_LILLY_AND_COMPANY-US201102005171

PATIENT
  Sex: Female

DRUGS (3)
  1. HUMULIN R [Suspect]
     Indication: DIABETES MELLITUS
     Dosage: 20 U, DAILY (1/D)
     Dates: start: 20110116
  2. HUMULIN N [Suspect]
     Dosage: 60 U, AS NEEDED
     Dates: start: 20110116
  3. HUMULIN N [Suspect]
     Indication: DIABETES MELLITUS
     Dosage: 40 U, EACH MORNING
     Dates: start: 20110116

REACTIONS (18)
  - VISUAL IMPAIRMENT [None]
  - CHROMATOPSIA [None]
  - VISUAL ACUITY REDUCED [None]
  - PARAESTHESIA ORAL [None]
  - SYSTEMIC LUPUS ERYTHEMATOSUS [None]
  - HEADACHE [None]
  - PHOTOPHOBIA [None]
  - FEELING HOT [None]
  - ASTHMA [None]
  - FEELING ABNORMAL [None]
  - GLYCOSYLATED HAEMOGLOBIN INCREASED [None]
  - WHEEZING [None]
  - DRUG INEFFECTIVE [None]
  - CHEST DISCOMFORT [None]
  - BLINDNESS [None]
  - BLOOD GLUCOSE INCREASED [None]
  - DRY MOUTH [None]
  - AUTOIMMUNE DISORDER [None]
